FAERS Safety Report 23087965 (Version 3)
Quarter: 2023Q4

REPORT INFORMATION
  Report Type: Spontaneous
  Country: FR (occurrence: FR)
  Receive Date: 20231020
  Receipt Date: 20231120
  Transmission Date: 20240109
  Serious: Yes (Death)
  Sender: FDA-Public Use
  Company Number: None

PATIENT
  Age: 42 Year
  Sex: Female
  Weight: 80 kg

DRUGS (3)
  1. CHORIOGONADOTROPIN ALFA [Suspect]
     Active Substance: CHORIOGONADOTROPIN ALFA
     Indication: Reproductive hormone
     Route: 042
     Dates: start: 20220601
  2. MENOPUR [Suspect]
     Active Substance: FOLLITROPIN\LUTEINIZING HORMONE
     Indication: Reproductive hormone
     Dates: start: 20220601
  3. SYNAREL [Suspect]
     Active Substance: NAFARELIN ACETATE
     Indication: Reproductive hormone
     Route: 055
     Dates: start: 20220601

REACTIONS (2)
  - Metastasis [Fatal]
  - Adenocarcinoma of colon [Fatal]

NARRATIVE: CASE EVENT DATE: 20221101
